FAERS Safety Report 10560099 (Version 1)
Quarter: 2014Q4

REPORT INFORMATION
  Report Type: Spontaneous
  Country: US (occurrence: None)
  Receive Date: 20141031
  Receipt Date: 20141031
  Transmission Date: 20150529
  Serious: Yes (Life-Threatening, Hospitalization)
  Sender: FDA-Public Use
  Company Number: None

PATIENT
  Age: 40 Year
  Sex: Male
  Weight: 91 kg

DRUGS (1)
  1. VANCOMYCIN HCL [Suspect]
     Active Substance: VANCOMYCIN HYDROCHLORIDE
     Route: 042

REACTIONS (6)
  - Confusional state [None]
  - Seizure [None]
  - Otorrhoea [None]
  - Meningitis [None]
  - Pharyngeal oedema [None]
  - Encephalitis [None]

NARRATIVE: CASE EVENT DATE: 20140904
